FAERS Safety Report 5112436-4 (Version None)
Quarter: 2006Q3

REPORT INFORMATION
  Report Type: 
  Country: None (occurrence: None)
  Receive Date: 20060922
  Receipt Date: 20060913
  Transmission Date: 20061208
  Serious: Yes (Hospitalization)
  Sender: FDA-Public Use
  Company Number: 2006UW18140

PATIENT
  Age: 63 Year
  Sex: Male

DRUGS (4)
  1. ATACAND [Suspect]
     Indication: HYPERTENSION
     Route: 048
     Dates: start: 20030101, end: 20060601
  2. ATACAND [Suspect]
     Route: 048
     Dates: start: 20060601, end: 20060901
  3. ATACAND [Suspect]
     Route: 048
     Dates: start: 20060901
  4. ASPIRIN [Concomitant]
     Indication: PROPHYLAXIS
     Dosage: 1 TAB Q 2 DAY
     Route: 048

REACTIONS (4)
  - ATRIAL FIBRILLATION [None]
  - BLOOD PRESSURE FLUCTUATION [None]
  - BLOOD PRESSURE INCREASED [None]
  - PERIPHERAL COLDNESS [None]
